FAERS Safety Report 16701641 (Version 1)
Quarter: 2019Q3

REPORT INFORMATION
  Report Type: Spontaneous
  Country: CA (occurrence: CA)
  Receive Date: 20190814
  Receipt Date: 20190814
  Transmission Date: 20191004
  Serious: Yes (Other)
  Sender: FDA-Public Use
  Company Number: CA-TEVA-2019-CA-1090879

PATIENT
  Sex: Male

DRUGS (4)
  1. VEDOLIZUMAB [Suspect]
     Active Substance: VEDOLIZUMAB
     Route: 065
  2. PREDNISONE. [Suspect]
     Active Substance: PREDNISONE
     Route: 065
  3. INFLIXIMAB [Suspect]
     Active Substance: INFLIXIMAB
  4. 6-MERCAPTOPURINE [Suspect]
     Active Substance: MERCAPTOPURINE
     Route: 065

REACTIONS (9)
  - Drug dependence [Unknown]
  - Colitis [Unknown]
  - Nausea [Unknown]
  - Drug resistance [Unknown]
  - Drug intolerance [Unknown]
  - Headache [Unknown]
  - Proctitis [Unknown]
  - Therapy non-responder [Unknown]
  - Drug ineffective [Unknown]
